FAERS Safety Report 11657582 (Version 2)
Quarter: 2015Q4

REPORT INFORMATION
  Report Type: Spontaneous
  Country: US (occurrence: US)
  Receive Date: 20151023
  Receipt Date: 20151027
  Transmission Date: 20160304
  Serious: No
  Sender: FDA-Public Use
  Company Number: US-ABBVIE-15P-163-1432489-00

PATIENT
  Sex: Female

DRUGS (1)
  1. LUPRON DEPOT [Suspect]
     Active Substance: LEUPROLIDE ACETATE
     Indication: HYSTERECTOMY
     Dosage: UNKNOWN DOSING AND FREQUENCY
     Route: 065
     Dates: start: 201506

REACTIONS (2)
  - Rash macular [Not Recovered/Not Resolved]
  - Off label use [Not Recovered/Not Resolved]
